FAERS Safety Report 6244567-X (Version None)
Quarter: 2009Q2

REPORT INFORMATION
  Report Type: 
  Country: None (occurrence: None)
  Receive Date: 20090625
  Receipt Date: 20090622
  Transmission Date: 20091009
  Serious: Yes (Other)
  Sender: FDA-Public Use
  Company Number: US-BAYER-200922425NA

PATIENT
  Age: 46 Year
  Sex: Female

DRUGS (4)
  1. MIRENA [Suspect]
     Indication: MENORRHAGIA
     Dosage: CONTINUOUS
     Route: 015
     Dates: start: 20090324, end: 20090602
  2. LITHIUM [Concomitant]
  3. EFFEXOR [Concomitant]
  4. TOPROL-XL [Concomitant]

REACTIONS (2)
  - INTRA-UTERINE CONTRACEPTIVE DEVICE EXPELLED [None]
  - OVARIAN CYSTECTOMY [None]
